FAERS Safety Report 17364887 (Version 2)
Quarter: 2020Q1

REPORT INFORMATION
  Report Type: Spontaneous
  Country: US (occurrence: US)
  Receive Date: 20200204
  Receipt Date: 20200204
  Transmission Date: 20200409
  Serious: No
  Sender: FDA-Public Use
  Company Number: US-JNJFOC-20200126884

PATIENT
  Age: 45 Year
  Sex: Male
  Weight: 90.8 kg

DRUGS (1)
  1. TYLENOL [Suspect]
     Active Substance: ACETAMINOPHEN
     Indication: ANALGESIC THERAPY
     Dosage: 2 GELCAPS COUPLE TIMES A MONTH
     Route: 048

REACTIONS (1)
  - Skin laceration [Recovered/Resolved]

NARRATIVE: CASE EVENT DATE: 20200113
